FAERS Safety Report 4471827-5 (Version None)
Quarter: 2004Q4

REPORT INFORMATION
  Report Type: 
  Country: None (occurrence: None)
  Receive Date: 20041006
  Receipt Date: 20040928
  Transmission Date: 20050328
  Serious: Yes (Other)
  Sender: FDA-Public Use
  Company Number: HQWYE215312AUG04

PATIENT
  Sex: Male

DRUGS (2)
  1. ALAVERT D-12 (LORATADINE/PSEUDOEPHEDRINE, TABLET, EXTENDED RELEASE) [Suspect]
     Dosage: ORAL
     Route: 048
  2. ZOLOFT [Suspect]
     Dosage: 100 MG 1X PER 1 DAY; ORAL
     Route: 048

REACTIONS (3)
  - DRUG INTERACTION [None]
  - HEART RATE INCREASED [None]
  - HEART RATE IRREGULAR [None]
